FAERS Safety Report 9378824 (Version 1)
Quarter: 2013Q2

REPORT INFORMATION
  Report Type: Spontaneous
  Country: US (occurrence: None)
  Receive Date: 20130626
  Receipt Date: 20130626
  Transmission Date: 20140414
  Serious: Yes (Other)
  Sender: FDA-Public Use
  Company Number: CABO-13002867

PATIENT
  Age: 66 Year
  Sex: Female
  Weight: 44.5 kg

DRUGS (2)
  1. COMETRIQ [Suspect]
     Indication: THYROID CANCER
     Route: 048
     Dates: start: 20130415, end: 2013
  2. SYNTHROID (LEVOTHYROXINE SODIUM) [Concomitant]

REACTIONS (3)
  - Pericardial effusion [None]
  - Road traffic accident [None]
  - Asthenia [None]
